FAERS Safety Report 23488762 (Version 1)
Quarter: 2024Q1

REPORT INFORMATION
  Report Type: Spontaneous
  Country: JP (occurrence: JP)
  Receive Date: 20240206
  Receipt Date: 20240206
  Transmission Date: 20240410
  Serious: No
  Sender: FDA-Public Use
  Company Number: JP-PFIZER INC-PV202400015252

PATIENT

DRUGS (1)
  1. PAXLOVID [Suspect]
     Active Substance: NIRMATRELVIR\RITONAVIR
     Indication: COVID-19 prophylaxis
     Dosage: UNK
     Route: 048

REACTIONS (1)
  - Intercepted product prescribing error [Unknown]

NARRATIVE: CASE EVENT DATE: 20240201
